FAERS Safety Report 12384069 (Version 1)
Quarter: 2016Q2

REPORT INFORMATION
  Report Type: Spontaneous
  Country: US (occurrence: None)
  Receive Date: 20160518
  Receipt Date: 20160518
  Transmission Date: 20160815
  Serious: No
  Sender: FDA-Public Use
  Company Number: None

PATIENT
  Age: 56 Year
  Sex: Female

DRUGS (1)
  1. ORENCIA [Suspect]
     Active Substance: ABATACEPT
     Dosage: 125MG QWEEK SQ
     Route: 058

REACTIONS (3)
  - Pruritus [None]
  - Peripheral swelling [None]
  - Hypersensitivity [None]

NARRATIVE: CASE EVENT DATE: 20160516
